FAERS Safety Report 8316307 (Version 6)
Quarter: 2014Q2

REPORT INFORMATION
  Report Type: Spontaneous
  Country: US (occurrence: US)
  Receive Date: 20111230
  Receipt Date: 20140414
  Transmission Date: 20141212
  Serious: Yes (Hospitalization)
  Sender: FDA-Public Use
  Company Number: US-BIOGENIDEC-2011BI048008

PATIENT
  Age: 56 Year
  Sex: Female

DRUGS (13)
  1. TYSABRI [Suspect]
     Indication: MULTIPLE SCLEROSIS
     Route: 042
     Dates: start: 20070627, end: 20111117
  2. NEURONTIN [Concomitant]
  3. NORTRIPTYLINE [Concomitant]
  4. FLONASE [Concomitant]
  5. HYDROCHLOROTHIAZIDE [Concomitant]
  6. NIFEDIAC [Concomitant]
  7. RED RICE YEAST [Concomitant]
  8. VITAMIN D [Concomitant]
  9. LACTOBACILLUS [Concomitant]
  10. MAGNESIUM [Concomitant]
  11. ALPHA LIPOIC ACID [Concomitant]
  12. IBUPROFEN [Concomitant]
  13. NIACIN [Concomitant]

REACTIONS (3)
  - Progressive multifocal leukoencephalopathy [Not Recovered/Not Resolved]
  - Immune reconstitution inflammatory syndrome [Recovered/Resolved]
  - Fungal infection [Unknown]
